FAERS Safety Report 7842495 (Version 6)
Quarter: 2014Q3

REPORT INFORMATION
  Report Type: Spontaneous
  Country: US (occurrence: US)
  Receive Date: 20110304
  Receipt Date: 20140703
  Transmission Date: 20150326
  Serious: Yes (Hospitalization, Other)
  Sender: FDA-Public Use
  Company Number: US-AMGEN-USASP2011010877

PATIENT
  Age: 54 Year
  Sex: Female

DRUGS (4)
  1. ENBREL [Suspect]
     Active Substance: ETANERCEPT
     Indication: RHEUMATOID ARTHRITIS
     Dosage: UNK
     Route: 065
     Dates: start: 20081201, end: 201406
  2. ENBREL [Suspect]
     Active Substance: ETANERCEPT
     Indication: PSORIASIS
     Dosage: UNK
     Route: 065
  3. METHOTREXATE [Concomitant]
     Active Substance: METHOTREXATE
     Dosage: 17.5 MG, QWK
     Dates: start: 2006
  4. ENBREL [Suspect]
     Active Substance: ETANERCEPT
     Indication: PSORIATIC ARTHROPATHY

REACTIONS (41)
  - Dry mouth [Unknown]
  - Fear [Not Recovered/Not Resolved]
  - Sciatica [Recovered/Resolved]
  - Intervertebral disc protrusion [Not Recovered/Not Resolved]
  - Vertigo [Unknown]
  - Joint injury [Unknown]
  - Musculoskeletal pain [Unknown]
  - Blister [Unknown]
  - Drug hypersensitivity [Unknown]
  - Psoriasis [Not Recovered/Not Resolved]
  - Influenza [Unknown]
  - Aphagia [Recovered/Resolved]
  - Pain in extremity [Not Recovered/Not Resolved]
  - Back pain [Not Recovered/Not Resolved]
  - Arthralgia [Not Recovered/Not Resolved]
  - Nasopharyngitis [Unknown]
  - Psoriatic arthropathy [Not Recovered/Not Resolved]
  - Kidney infection [Unknown]
  - Stress [Not Recovered/Not Resolved]
  - Fall [Unknown]
  - Laceration [Recovered/Resolved]
  - Chromaturia [Not Recovered/Not Resolved]
  - Onychoclasis [Not Recovered/Not Resolved]
  - Abdominal distension [Not Recovered/Not Resolved]
  - Pain [Not Recovered/Not Resolved]
  - Infection [Unknown]
  - Fungal infection [Unknown]
  - Stress fracture [Unknown]
  - Rheumatoid arthritis [Not Recovered/Not Resolved]
  - Staphylococcal infection [Recovered/Resolved]
  - Red blood cell sedimentation rate increased [Not Recovered/Not Resolved]
  - Mobility decreased [Not Recovered/Not Resolved]
  - Nervousness [Not Recovered/Not Resolved]
  - Localised infection [Recovered/Resolved]
  - Escherichia urinary tract infection [Not Recovered/Not Resolved]
  - Tearfulness [Not Recovered/Not Resolved]
  - Muscle disorder [Unknown]
  - Sleep disorder [Not Recovered/Not Resolved]
  - Rash macular [Not Recovered/Not Resolved]
  - Skin discolouration [Not Recovered/Not Resolved]
  - Joint lock [Not Recovered/Not Resolved]

NARRATIVE: CASE EVENT DATE: 201010
